FAERS Safety Report 6999616-8 (Version None)
Quarter: 2010Q3

REPORT INFORMATION
  Report Type: 
  Country: None (occurrence: None)
  Receive Date: 20100920
  Receipt Date: 20090911
  Transmission Date: 20110219
  Serious: No
  Sender: FDA-Public Use
  Company Number: US-ASTRAZENECA-2009SE12894

PATIENT
  Sex: Male

DRUGS (2)
  1. SEROQUEL [Suspect]
     Dosage: ACION TAKEN TEMPORARY STOP
     Route: 048
  2. SEROQUEL [Suspect]
     Dosage: SEROQUEL XR ACTION TAKEN REDUCED
     Route: 048

REACTIONS (6)
  - DIZZINESS [None]
  - DRUG DOSE OMISSION [None]
  - FATIGUE [None]
  - GAIT DISTURBANCE [None]
  - PANIC ATTACK [None]
  - SLEEP DISORDER [None]
